FAERS Safety Report 6388560-5 (Version None)
Quarter: 2009Q4

REPORT INFORMATION
  Report Type: 
  Country: None (occurrence: None)
  Receive Date: 20091001
  Receipt Date: 20091001
  Transmission Date: 20100525
  Serious: No
  Sender: FDA-Public Use
  Company Number: None

PATIENT
  Sex: Female
  Weight: 80.7403 kg

DRUGS (7)
  1. REGLAN [Suspect]
     Indication: GASTROOESOPHAGEAL REFLUX DISEASE
     Dosage: PO
     Route: 048
     Dates: start: 19960101, end: 20060301
  2. DESIPRAMINE HCL [Suspect]
     Indication: DEPRESSION
     Dosage: PO
     Route: 048
     Dates: start: 19960601, end: 20060301
  3. IMIPRAMINE [Suspect]
  4. CABERGOLINE [Suspect]
  5. CELEXA [Suspect]
  6. PREVACID [Suspect]
  7. TIZANIDINE HCL [Suspect]

REACTIONS (4)
  - MEMORY IMPAIRMENT [None]
  - PROLACTINOMA [None]
  - TARDIVE DYSKINESIA [None]
  - TIC [None]
